FAERS Safety Report 12455746 (Version 5)
Quarter: 2023Q4

REPORT INFORMATION
  Report Type: Spontaneous
  Country: FR (occurrence: FR)
  Receive Date: 20160610
  Receipt Date: 20231229
  Transmission Date: 20240110
  Serious: Yes (Life-Threatening, Hospitalization, Other)
  Sender: FDA-Public Use
  Company Number: FR-BOEHRINGER INGELHEIM GMBH, GERMANY-2016-BI-37012FF

PATIENT
  Age: 49 Year
  Sex: Female
  Weight: 67 kg

DRUGS (33)
  1. MOBIC [Suspect]
     Active Substance: MELOXICAM
     Indication: Product used for unknown indication
     Dosage: 15 MG, QD
  2. MOBIC [Suspect]
     Active Substance: MELOXICAM
     Dosage: 429 MG, TOTAL (28DF)
     Route: 065
     Dates: start: 20160109, end: 20160109
  3. MOBIC [Suspect]
     Active Substance: MELOXICAM
     Dosage: STRENGTH: 15 MG
     Route: 065
  4. TRAMADOL HYDROCHLORIDE [Suspect]
     Active Substance: TRAMADOL HYDROCHLORIDE
     Indication: Product used for unknown indication
  5. TRAMADOL HYDROCHLORIDE [Suspect]
     Active Substance: TRAMADOL HYDROCHLORIDE
     Dosage: 6000 MG, TOTAL
     Dates: start: 20160109, end: 20160109
  6. CYAMEMAZINE [Suspect]
     Active Substance: CYAMEMAZINE
     Indication: Product used for unknown indication
     Dosage: 150 DF,TOTAL (3000MG)
     Dates: start: 20160109, end: 20160109
  7. CYAMEMAZINE [Suspect]
     Active Substance: CYAMEMAZINE
     Dosage: 12.5 MG, QD
  8. BACLOFEN [Suspect]
     Active Substance: BACLOFEN
     Indication: Product used for unknown indication
     Dosage: 12 MG, QD
  9. BACLOFEN [Suspect]
     Active Substance: BACLOFEN
     Dosage: 12 DF, TOTAL
     Dates: start: 20160109, end: 20160109
  10. LYRICA [Suspect]
     Active Substance: PREGABALIN
     Indication: Product used for unknown indication
     Dosage: 8400 MG, TOTAL (56 DF)
     Dates: start: 20160109, end: 20160109
  11. ARCOXIA [Suspect]
     Active Substance: ETORICOXIB
     Indication: Product used for unknown indication
     Dosage: 1680 MG, TOTAL
     Route: 065
     Dates: start: 20160109, end: 20160109
  12. ARCOXIA [Suspect]
     Active Substance: ETORICOXIB
     Dosage: 60 MG
  13. LYRICA [Suspect]
     Active Substance: PREGABALIN
     Indication: Product used for unknown indication
     Dosage: 1 DF,BID
  14. LYRICA [Suspect]
     Active Substance: PREGABALIN
     Dosage: 300 MG, QD
  15. STELARA [Suspect]
     Active Substance: USTEKINUMAB
     Indication: Psoriasis
     Dosage: 90 MG, Q12W
     Route: 065
     Dates: start: 201506, end: 20160109
  16. STELARA [Suspect]
     Active Substance: USTEKINUMAB
     Indication: Product used for unknown indication
     Dosage: 45 MG, Q12W
     Dates: start: 20150226, end: 201506
  17. LEVOTHYROXINE [Suspect]
     Active Substance: LEVOTHYROXINE
     Indication: Product used for unknown indication
     Dosage: 4500 MG, TOTAL (30 DF)
     Route: 065
     Dates: start: 20160109, end: 20160109
  18. LEVOTHYROXINE [Suspect]
     Active Substance: LEVOTHYROXINE
     Route: 065
  19. POTASSIUM CHLORIDE [Suspect]
     Active Substance: POTASSIUM CHLORIDE
     Indication: Product used for unknown indication
     Dosage: 10 DF, QD
     Dates: start: 20160109, end: 20160109
  20. RACECADOTRIL [Concomitant]
     Active Substance: RACECADOTRIL
     Indication: Product used for unknown indication
     Dosage: UNK; UOSAGE FORM: UNSPECIFIED, AS REQUIRED
  21. ENOXAPARIN SODIUM [Concomitant]
     Active Substance: ENOXAPARIN SODIUM
     Indication: Product used for unknown indication
     Dosage: 0.4 ML, TOTAL
  22. LOVENOX [Concomitant]
     Active Substance: ENOXAPARIN SODIUM
     Indication: Product used for unknown indication
     Dosage: FREQUENCY OD
     Route: 065
  23. SACOLENE [Concomitant]
     Indication: Product used for unknown indication
     Dosage: UNK; UOSAGE FORM: UNSPECIFIED, AS REQUIRED
  24. FORLAXGO [Concomitant]
     Indication: Product used for unknown indication
     Dosage: 10 G, PRN
  25. TRAMADOL HYDROCHLORIDE [Concomitant]
     Active Substance: TRAMADOL HYDROCHLORIDE
     Indication: Product used for unknown indication
     Dosage: 1 DF,BID
     Route: 065
  26. ACETAMINOPHEN [Concomitant]
     Active Substance: ACETAMINOPHEN
     Indication: Product used for unknown indication
     Dosage: UNK
  27. ESOMEPRAZOLE MAGNESIUM [Concomitant]
     Active Substance: ESOMEPRAZOLE MAGNESIUM
     Indication: Product used for unknown indication
     Dosage: UNK
  28. ENEXIUM [Concomitant]
     Indication: Product used for unknown indication
     Dosage: 40 MG, QD
  29. SMECTA [Concomitant]
     Active Substance: MONTMORILLONITE
     Indication: Product used for unknown indication
     Dosage: UNK
     Route: 065
  30. ZOCOR [Concomitant]
     Active Substance: SIMVASTATIN
     Indication: Product used for unknown indication
     Dosage: 20 MG, QD
  31. URAPIDIL [Concomitant]
     Active Substance: URAPIDIL
     Indication: Product used for unknown indication
     Dosage: 30 MG, TID
     Route: 065
  32. ACETAMINOPHEN [Concomitant]
     Active Substance: ACETAMINOPHEN
     Indication: Pain
     Dosage: 3 G, QD
     Route: 065
  33. ARAVA [Concomitant]
     Active Substance: LEFLUNOMIDE
     Indication: Product used for unknown indication
     Dosage: 20 MG, QD

REACTIONS (18)
  - Lung disorder [Recovered/Resolved]
  - Dysphonia [Unknown]
  - Anaemia [Unknown]
  - Coma [Recovered/Resolved]
  - Thrombocytosis [Not Recovered/Not Resolved]
  - Cardio-respiratory arrest [Recovered/Resolved]
  - Toxic encephalopathy [Unknown]
  - Suicide attempt [Recovered/Resolved]
  - Intentional overdose [Recovered/Resolved]
  - Toxicity to various agents [Recovered/Resolved]
  - Acute respiratory distress syndrome [Recovered/Resolved]
  - Hepatic cytolysis [Recovered/Resolved]
  - Pneumonia staphylococcal [Recovered/Resolved]
  - Pneumonia [Recovered/Resolved]
  - Pneumonia haemophilus [Recovered/Resolved]
  - Amnesia [Unknown]
  - Pneumonia [Recovered/Resolved]
  - Suicide attempt [Recovered/Resolved]

NARRATIVE: CASE EVENT DATE: 20160101
